FAERS Safety Report 6623991-7 (Version None)
Quarter: 2010Q1

REPORT INFORMATION
  Report Type: 
  Country: None (occurrence: None)
  Receive Date: 20100310
  Receipt Date: 20100301
  Transmission Date: 20100710
  Serious: Yes (Hospitalization)
  Sender: FDA-Public Use
  Company Number: US-JNJFOC-20100301163

PATIENT
  Sex: Male
  Weight: 80.74 kg

DRUGS (9)
  1. FENTANYL-100 [Suspect]
     Indication: PAIN
     Route: 062
  2. FENTANYL [Suspect]
     Indication: PAIN
     Route: 062
  3. FENTANYL [Suspect]
     Route: 062
  4. LISINOPRIL [Concomitant]
     Indication: BLOOD PRESSURE
     Route: 048
  5. ATENOLOL [Concomitant]
     Indication: BLOOD PRESSURE
     Route: 048
  6. BACLOFEN [Concomitant]
     Indication: MUSCLE SPASMS
     Route: 048
  7. METFORMIN HYDROCHLORIDE [Concomitant]
     Indication: DIABETES MELLITUS
     Route: 048
  8. HYDROCODONE [Concomitant]
     Indication: BREAKTHROUGH PAIN
     Dosage: 10/325
     Route: 048
  9. UNSPECIFED MEDICATIONS [Concomitant]
     Indication: BLOOD CHOLESTEROL ABNORMAL
     Dosage: 10/325
     Route: 048

REACTIONS (3)
  - DEVICE FAILURE [None]
  - DRUG EFFECT DECREASED [None]
  - INTERVERTEBRAL DISC PROTRUSION [None]
